FAERS Safety Report 23086501 (Version 1)
Quarter: 2023Q4

REPORT INFORMATION
  Report Type: Spontaneous
  Country: US (occurrence: US)
  Receive Date: 20231019
  Receipt Date: 20231019
  Transmission Date: 20240109
  Serious: Yes (Hospitalization, Other)
  Sender: FDA-Public Use
  Company Number: US-MLMSERVICE-20231005-4590319-1

PATIENT
  Age: 44 Year
  Sex: Male

DRUGS (3)
  1. PHENYLEPHRINE [Suspect]
     Active Substance: PHENYLEPHRINE HYDROCHLORIDE
     Indication: Vasopressive therapy
     Dosage: 100 MICROGRAM EVERY MINUTE (MAXIMUM DOSES)
     Route: 065
  2. VASOPRESSIN [Suspect]
     Active Substance: VASOPRESSIN
     Indication: Vasopressive therapy
     Dosage: 0.03 INTERNATIONAL UNIT EVERY MINUTE (MAXIMUM DOSES)
     Route: 065
  3. NOREPINEPHRINE [Suspect]
     Active Substance: NOREPINEPHRINE
     Indication: Vasopressive therapy
     Dosage: 50 MICROGRAM EVERY MINUTE (MAXIMUM DOSES)
     Route: 065

REACTIONS (2)
  - Toxic epidermal necrolysis [Unknown]
  - Peripheral ischaemia [Unknown]
